FAERS Safety Report 18749778 (Version 14)
Quarter: 2021Q2

REPORT INFORMATION
  Report Type: Other
  Country: GB (occurrence: GB)
  Receive Date: 20210117
  Receipt Date: 20210603
  Transmission Date: 20210717
  Serious: Yes (Hospitalization, Other)
  Sender: FDA-Public Use
  Company Number: GB-CELLTRION INC.-2021GB000351

PATIENT

DRUGS (60)
  1. INFLIXIMAB (UNKNOWN) [Suspect]
     Active Substance: INFLIXIMAB
     Dosage: UNK( UNK UNK, Q2MO (1 TIME EVERY 8 WEEK)) 356
     Route: 042
     Dates: start: 2020
  2. INFLIXIMAB (UNKNOWN) [Suspect]
     Active Substance: INFLIXIMAB
     Dosage: 8QD (STOPPED SEVEN WEEKS AGO), PHARMACEUTICAL DOSE FORM (FREE TEXT): 356; 194
     Route: 042
  3. IMRALDI [Suspect]
     Active Substance: ADALIMUMAB
     Dosage: 80 MG (80 MILLIGRAM (WEEK TWO), PHARMACEUTICAL DOSE FORM (FREE TEXT):231)
     Route: 058
  4. IMRALDI [Suspect]
     Active Substance: ADALIMUMAB
     Dosage: 40 MG, CYCLIC (40 MILLIGRAM, Q2WK(MAINTENANCE);PHARMACEUTICAL DOSE FORM (FREE TEXT):231)
     Route: 058
  5. IMRALDI [Suspect]
     Active Substance: ADALIMUMAB
     Dosage: 40 MG, CYCLIC (40 MILLIGRAM, Q2WK) (MAINTENANCE); PHARMACEUTICAL DOSE FORM (FREE TEXT):231)
     Route: 058
  6. IMRALDI [Suspect]
     Active Substance: ADALIMUMAB
     Dosage: 40 MG, CYCLIC (40 MG EVERY 2 WEEKS, (MAINTENANCE))
     Route: 058
  7. IMRALDI [Suspect]
     Active Substance: ADALIMUMAB
     Dosage: 40 MG, CYCLIC (40 MG, Q2WEEKS)
     Route: 058
  8. IMRALDI [Suspect]
     Active Substance: ADALIMUMAB
     Dosage: 40 MG, CYCLIC (40 MG, Q2WEEKS)
     Route: 058
     Dates: start: 20200814
  9. IMRALDI [Suspect]
     Active Substance: ADALIMUMAB
     Dosage: 40 MG, CYCLIC (40 MILLIGRAM, Q2WK), (MAITENANCE); PHARMACEUTICAL DOSE FORM (FREE TEXT):231)
     Route: 058
  10. INFLIXIMAB (UNKNOWN) [Suspect]
     Active Substance: INFLIXIMAB
     Dosage: UNK, CYCLIC (EVERY 8 WEEK, STOPPED SEVEN WEEKS AGO 1 TIME EVERY 8 WEEK) 356
     Route: 042
     Dates: start: 2020
  11. IMRALDI [Suspect]
     Active Substance: ADALIMUMAB
     Dosage: 40 MG, CYCLIC (40 MILLIGRAM, Q2WEEKS)
     Route: 058
  12. IMRALDI [Suspect]
     Active Substance: ADALIMUMAB
     Dosage: 80 MG CYCLIC(WEEK TWO), PHARMACEUTICAL DOSE FORM (FREE TEXT):231)
     Route: 058
  13. IMRALDI [Suspect]
     Active Substance: ADALIMUMAB
     Dosage: 40 MG (40 MILLIGRAM (WEEK FOUR); PHARMACEUTICAL DOSE FORM (FREE TEXT):231
     Route: 058
  14. IMRALDI [Suspect]
     Active Substance: ADALIMUMAB
     Dosage: 40 MG (40 MILLIGRAM (WEEK FOUR); PHARMACEUTICAL DOSE FORM (FREE TEXT):231
     Route: 058
  15. IMRALDI [Suspect]
     Active Substance: ADALIMUMAB
     Dosage: 40 MG, CYCLIC (40 MG, Q2WEEKS)
     Route: 058
  16. IMRALDI [Suspect]
     Active Substance: ADALIMUMAB
     Dosage: 40 MG, CYCLIC (40 MG, Q2WEEKS) (MAINTENANCE)
     Route: 058
  17. IMRALDI [Suspect]
     Active Substance: ADALIMUMAB
     Dosage: 40 MG CYCLIC(40 MILLIGRAM, Q2WEEKS
     Route: 058
  18. IMRALDI [Suspect]
     Active Substance: ADALIMUMAB
     Dosage: 40 MG (40 MILLIGRAM (WEEK FOUR); PHARMACEUTICAL DOSE FORM (FREE TEXT): 231)
     Route: 058
  19. IMRALDI [Suspect]
     Active Substance: ADALIMUMAB
     Dosage: 40 MG, CYCLIC (40 MG, Q2WEEKS)
     Route: 058
  20. IMRALDI [Suspect]
     Active Substance: ADALIMUMAB
     Dosage: 40 MG, CYCLIC (40 MILLIGRAM, Q2WK (MAINTENANCE); PHARMACEUTICAL DOSE FORM (FREE TEXT):231)
     Route: 058
  21. IMRALDI [Suspect]
     Active Substance: ADALIMUMAB
     Dosage: 40 MG (40 MILLIGRAM (WEEK FOUR); PHARMACEUTICAL DOSE FORM (FREE TEXT): 231)
     Route: 058
  22. IMRALDI [Suspect]
     Active Substance: ADALIMUMAB
     Dosage: 40 MG (40 MILLIGRAM (WEEK FOUR), PHARMACEUTICAL DOSE FORM (FREE TEXT):231)
     Route: 058
  23. IMRALDI [Suspect]
     Active Substance: ADALIMUMAB
     Dosage: 40 MG, CYCLIC (40 MILLIGRAM, Q2WEEKS)
     Route: 058
  24. IMRALDI [Suspect]
     Active Substance: ADALIMUMAB
     Dosage: 40 MG (40 MILLIGRAM (WEEK FOUR), PHARMACEUTICAL DOSE FORM (FREE TEXT):231)
     Route: 058
  25. IMRALDI [Suspect]
     Active Substance: ADALIMUMAB
     Dosage: 40 MG, CYCLIC (40 MG, EVERY 2 WEEKS) ,(MAINTENANCE)
     Route: 058
  26. IMRALDI [Suspect]
     Active Substance: ADALIMUMAB
     Dosage: 80 MG (80 MILLIGRAM (WEEK TWO), PHARMACEUTICAL DOSE FORM (FREE TEXT):231)
     Route: 058
  27. IMRALDI [Suspect]
     Active Substance: ADALIMUMAB
     Dosage: 80 MG (80 MILLIGRAM (WEEK TWO), PHARMACEUTICAL DOSE FORM (FREE TEXT):231)
     Route: 058
  28. INFLIXIMAB (UNKNOWN) [Suspect]
     Active Substance: INFLIXIMAB
     Dosage: UNK, EVERY 8 WEEKS (UNKNOWN, STOPPED SEVEN WEEKS AGO) 356
     Route: 065
     Dates: start: 2020
  29. INFLIXIMAB (UNKNOWN) [Suspect]
     Active Substance: INFLIXIMAB
     Dosage: UNK, CYCLIC (EVERY 8 WEEK, STOPPED SEVEN WEEKS AGO 1 TIME EVERY 8 WEEK) 356
     Route: 042
     Dates: start: 2020
  30. INFLIXIMAB (UNKNOWN) [Suspect]
     Active Substance: INFLIXIMAB
     Dosage: 1, CYCLIC (EVERY 8 WEEKS)
     Route: 042
     Dates: start: 2020
  31. IMRALDI [Suspect]
     Active Substance: ADALIMUMAB
     Dosage: 40 MG, CYCLIC (40 MG, EVERY 2 WEEKS) (MAINTENANCE)
     Route: 058
  32. IMRALDI [Suspect]
     Active Substance: ADALIMUMAB
     Dosage: 40 MG, CYCLIC (Q2W) (MAINTENANCE); PHARMACEUTICAL DOSE FORM (FREE TEXT): 231
     Route: 058
  33. IMRALDI [Suspect]
     Active Substance: ADALIMUMAB
     Dosage: 40 MG CYCLIC (40 MILLIGRAM, Q2WK) (MAINTENANCE); PHARMACEUTICAL DOSE FORM (FREE TEXT):231)
     Route: 058
  34. IMRALDI [Suspect]
     Active Substance: ADALIMUMAB
     Dosage: 40 MG, CYCLIC (Q2W) (MAINTENANCE);PHARMACEUTICAL DOSE FORM (FREE TEXT):231
     Route: 058
     Dates: start: 20200814
  35. IMRALDI [Suspect]
     Active Substance: ADALIMUMAB
     Dosage: 80 MG (80 MILLIGRAM (WEEK TWO), PHARMACEUTICAL DOSE FORM (FREE TEXT):231)
     Route: 058
  36. IMRALDI [Suspect]
     Active Substance: ADALIMUMAB
     Dosage: 160 MG ((WEEK ZERO) PHARMACEUTICAL DOSE FORM (FREE TEXT): 231)
     Route: 058
     Dates: start: 20200814
  37. IMRALDI [Suspect]
     Active Substance: ADALIMUMAB
     Dosage: 80 MG (80 MILLIGRAM (WEEK TWO), PHARMACEUTICAL DOSE FORM (FREE TEXT):231)
     Route: 058
  38. IMRALDI [Suspect]
     Active Substance: ADALIMUMAB
     Dosage: 40 MILLIGRAM, Q2WK (MAINTENANCE); PHARMACEUTICAL DOSE FORM (FREE TEXT): 231
     Route: 058
  39. IMRALDI [Suspect]
     Active Substance: ADALIMUMAB
     Dosage: 80 MG, CYCLIC (WEEK TWO), PHARMACEUTICAL DOSE FORM (FREE TEXT): 231
     Route: 058
  40. IMRALDI [Suspect]
     Active Substance: ADALIMUMAB
     Dosage: 40 MG (40 MILLIGRAM (WEEK FOUR); PHARMACEUTICAL DOSE FORM (FREE TEXT): 231)
     Route: 058
  41. IMRALDI [Suspect]
     Active Substance: ADALIMUMAB
     Dosage: 40 MG (40 MILLIGRAM (WEEK FOUR); PHARMACEUTICAL DOSE FORM (FREE TEXT):231
     Route: 058
  42. IMRALDI [Suspect]
     Active Substance: ADALIMUMAB
     Dosage: 80 MILLIGRAM (WEEK TWO), PHARMACEUTICAL DOSE FORM (FREE TEXT): 231
     Route: 058
     Dates: start: 20200814
  43. IMRALDI [Suspect]
     Active Substance: ADALIMUMAB
     Dosage: 40 MG, CYCLIC (40 MILLIGRAM.Q2WK)
     Route: 058
  44. INFLIXIMAB (UNKNOWN) [Suspect]
     Active Substance: INFLIXIMAB
     Indication: PRODUCT USED FOR UNKNOWN INDICATION
     Dosage: 1, CYCLIC (EVERY 8 WEEKS)
     Route: 042
  45. INFLIXIMAB (UNKNOWN) [Suspect]
     Active Substance: INFLIXIMAB
     Dosage: UNK, CYCLIC (1 EVERY 2 MONTHS Q2MO)) 356
     Route: 042
  46. IMRALDI [Suspect]
     Active Substance: ADALIMUMAB
     Indication: COLITIS ULCERATIVE
     Dosage: 160 MG ((WEEK ZERO) PHARMACEUTICAL DOSE FORM (FREE TEXT): 231)
     Route: 058
     Dates: start: 20200814
  47. IMRALDI [Suspect]
     Active Substance: ADALIMUMAB
     Dosage: 40 MG, CYCLIC (40 MILLIGRAM, Q2WK(MAINTENANCE); PHARMACEUTICAL DOSE FORM (FREE TEXT):231)
     Route: 058
  48. IMRALDI [Suspect]
     Active Substance: ADALIMUMAB
     Dosage: 40 MG, Q2WEEKS (MAINTENANCE)
     Route: 058
  49. IMRALDI [Suspect]
     Active Substance: ADALIMUMAB
     Dosage: 160 MILLIGRAM (WEEK ZERO); PHARMACEUTICAL DOSE FORM (FREE TEXT): 231
     Route: 058
  50. IMRALDI [Suspect]
     Active Substance: ADALIMUMAB
     Dosage: 40 MG, CYCLIC (40 MILLIGRAM, Q2WK (MAINTENANCE); PHARMACEUTICAL DOSE FORM (FREE TEXT):231)
     Route: 058
  51. IMRALDI [Suspect]
     Active Substance: ADALIMUMAB
     Dosage: 160 MILLIGRAM (WEEK ZERO); PHARMACEUTICAL DOSE FORM (FREE TEXT): 231
     Route: 058
  52. IMRALDI [Suspect]
     Active Substance: ADALIMUMAB
     Dosage: 40 MG Q2WEEKS (MAINTENANCE)
     Route: 058
  53. INFLIXIMAB (UNKNOWN) [Suspect]
     Active Substance: INFLIXIMAB
     Dosage: 1, CYCLIC (EVERY 8 WEEKS)
     Route: 042
  54. INFLIXIMAB (UNKNOWN) [Suspect]
     Active Substance: INFLIXIMAB
     Dosage: 8QD (STOPPED SEVEN WEEKS AGO), PHARMACEUTICAL DOSE FORM (FREE TEXT): 356; 194)
     Route: 042
  55. IMRALDI [Suspect]
     Active Substance: ADALIMUMAB
     Dosage: 160 MG ((WEEK ZERO) PHARMACEUTICAL DOSE FORM (FREE TEXT): 231)
     Route: 058
     Dates: start: 20200814
  56. IMRALDI [Suspect]
     Active Substance: ADALIMUMAB
     Dosage: 80 MG (80 MILLIGRAM (WEEK TWO), PHARMACEUTICAL DOSE FORM (FREE TEXT): 231)
     Route: 058
  57. IMRALDI [Suspect]
     Active Substance: ADALIMUMAB
     Dosage: 160 MG ((WEEK ZERO) PHARMACEUTICAL DOSE FORM (FREE TEXT): 231)
     Route: 058
     Dates: start: 20200814
  58. IMRALDI [Suspect]
     Active Substance: ADALIMUMAB
     Dosage: 40 MG, CYCLIC (40 MILLIGRAM, Q2WK), (MAITENANCE); PHARMACEUTICAL DOSE FORM (FREE TEXT):231)
     Route: 058
  59. IMRALDI [Suspect]
     Active Substance: ADALIMUMAB
     Dosage: 160 MG ((WEEK ZERO) PHARMACEUTICAL DOSE FORM (FREE TEXT): 231)
     Route: 058
     Dates: start: 20200814
  60. IMRALDI [Suspect]
     Active Substance: ADALIMUMAB
     Dosage: 40 MG (40 MILLIGRAM, WEEK FOUR);PHARMACEUTICAL DOSE FORM (FREE TEXT): 231
     Route: 058

REACTIONS (12)
  - Tooth disorder [Unknown]
  - Diarrhoea [Unknown]
  - Headache [Unknown]
  - Sleep disorder [Unknown]
  - Head discomfort [Unknown]
  - Anxiety [Unknown]
  - Asthenia [Unknown]
  - Fatigue [Unknown]
  - Injection site pain [Unknown]
  - Abdominal pain lower [Unknown]
  - Weight decreased [Unknown]
  - Drug ineffective [Unknown]
